FAERS Safety Report 9704239 (Version 4)
Quarter: 2013Q4

REPORT INFORMATION
  Report Type: Spontaneous
  Country: JP (occurrence: JP)
  Receive Date: 20131122
  Receipt Date: 20131218
  Transmission Date: 20140711
  Serious: Yes (Death)
  Sender: FDA-Public Use
  Company Number: JP-B.I. PHARMACEUTICALS,INC./RIDGEFIELD-2013-BI-38271NB

PATIENT
  Sex: Female

DRUGS (5)
  1. TRAZENTA [Suspect]
     Indication: DIABETES MELLITUS
     Dosage: 5 MG
     Route: 048
     Dates: start: 20131024, end: 20131114
  2. DIOVAN (VALSARTAN) [Concomitant]
     Route: 048
  3. ZETIA (EZETIMIBE) [Concomitant]
     Route: 048
  4. ALDACTONE A (SPIRONOLACTONE) [Concomitant]
     Route: 048
  5. ASPIRIN [Concomitant]
     Route: 048

REACTIONS (2)
  - Death [Fatal]
  - Malaise [Unknown]
